FAERS Safety Report 6108413-7 (Version None)
Quarter: 2009Q1

REPORT INFORMATION
  Report Type: 
  Country: None (occurrence: None)
  Receive Date: 20090309
  Receipt Date: 20090309
  Transmission Date: 20090719
  Serious: Yes (Death, Life-Threatening, Hospitalization)
  Sender: FDA-Public Use
  Company Number: PHHO2000IT01084

PATIENT
  Sex: Male
  Weight: 62 kg

DRUGS (7)
  1. SIMULECT [Suspect]
     Indication: LIVER TRANSPLANT
     Dosage: 20 MG, ONCE/SINGLE, DAY 0
     Dates: start: 19990519, end: 19990519
  2. SIMULECT [Suspect]
     Dosage: 20 MG, ONCE/SINGLE, DAY 4
     Dates: start: 19990523, end: 19990523
  3. ACTIVE CONTROL A.C. [Suspect]
  4. NEORAL [Suspect]
     Indication: LIVER TRANSPLANT
  5. METHYLPREDNISOLONE (METHYLPREDNISOLONE) OR PLACEBO [Suspect]
     Indication: LIVER TRANSPLANT
  6. PREDNISOLONE [Suspect]
     Indication: LIVER TRANSPLANT
  7. FK506 (TACROLIMUS) [Suspect]
     Indication: LIVER TRANSPLANT

REACTIONS (9)
  - ABSCESS [None]
  - CANDIDIASIS [None]
  - COMA [None]
  - JAUNDICE [None]
  - LUNG DISORDER [None]
  - NEPHROPATHY TOXIC [None]
  - PNEUMONIA [None]
  - RENAL FAILURE ACUTE [None]
  - SEPSIS [None]
